FAERS Safety Report 16540592 (Version 4)
Quarter: 2019Q4

REPORT INFORMATION
  Report Type: Spontaneous
  Country: US (occurrence: US)
  Receive Date: 20190708
  Receipt Date: 20191217
  Transmission Date: 20200122
  Serious: Yes (Other)
  Sender: FDA-Public Use
  Company Number: US-SA-2019SA181960

PATIENT
  Age: 30 Year
  Sex: Female
  Weight: 58.96 kg

DRUGS (1)
  1. DUPIXENT [Suspect]
     Active Substance: DUPILUMAB
     Indication: DERMATITIS ATOPIC
     Dosage: 300 MG, QOW
     Route: 058
     Dates: start: 201905

REACTIONS (8)
  - Pneumonia [Unknown]
  - Eye swelling [Recovered/Resolved]
  - Skin exfoliation [Unknown]
  - Influenza [Unknown]
  - Dry skin [Unknown]
  - Eye irritation [Recovered/Resolved]
  - Eczema [Unknown]
  - Skin laceration [Unknown]

NARRATIVE: CASE EVENT DATE: 2019
